FAERS Safety Report 9696020 (Version 5)
Quarter: 2014Q2

REPORT INFORMATION
  Report Type: Spontaneous
  Country: US (occurrence: None)
  Receive Date: 20131115
  Receipt Date: 20140630
  Transmission Date: 20141212
  Serious: Yes (Hospitalization)
  Sender: FDA-Public Use
  Company Number: 2013US002825

PATIENT
  Age: 51 Year
  Sex: Female

DRUGS (10)
  1. PONATINIB (AP24534) TABLET [Suspect]
     Indication: GASTROINTESTINAL STROMAL TUMOUR
     Route: 048
     Dates: start: 20130909, end: 20130914
  2. COMPAZINE (PROCHLORPERAZINE EDISYLATE) [Concomitant]
  3. METHADONE (METHADONE) [Concomitant]
  4. XANAX (ALPRAZOLAM) [Concomitant]
  5. MIRALAX [Concomitant]
  6. PRILOSEC [Concomitant]
  7. COLACE [Concomitant]
  8. SENNA-S [Concomitant]
  9. IBUPROFEN (IBUPROFEN) [Concomitant]
  10. CLOTRIMAZOLE (CLOTRIMAZOLE) [Concomitant]

REACTIONS (19)
  - Right ventricular dysfunction [None]
  - Nausea [None]
  - Vomiting [None]
  - Cardiomegaly [None]
  - Sinus bradycardia [None]
  - Sinus arrhythmia [None]
  - Pleural effusion [None]
  - Sleep apnoea syndrome [None]
  - Systolic dysfunction [None]
  - Electrocardiogram ST-T change [None]
  - Abdominal pain [None]
  - Back pain [None]
  - Fatigue [None]
  - Electrocardiogram QT prolonged [None]
  - Tricuspid valve incompetence [None]
  - Ventricular extrasystoles [None]
  - Blood glucose decreased [None]
  - Flatulence [None]
  - Rales [None]
